FAERS Safety Report 15141753 (Version 4)
Quarter: 2020Q2

REPORT INFORMATION
  Report Type: Spontaneous
  Country: GB (occurrence: GB)
  Receive Date: 20180713
  Receipt Date: 20200629
  Transmission Date: 20200713
  Serious: Yes (Other)
  Sender: FDA-Public Use
  Company Number: GB-PFIZER INC-2018281111

PATIENT
  Age: 36 Year
  Sex: Female

DRUGS (3)
  1. ZOLOFT [Suspect]
     Active Substance: SERTRALINE HYDROCHLORIDE
     Indication: BODY DYSMORPHIC DISORDER
     Dosage: 250 MG, UNK
     Dates: start: 2015, end: 201603
  2. ZOLOFT [Suspect]
     Active Substance: SERTRALINE HYDROCHLORIDE
     Dosage: 150 MG, UNK
     Dates: start: 2017, end: 2017
  3. ZOLOFT [Suspect]
     Active Substance: SERTRALINE HYDROCHLORIDE
     Dosage: 250 MG, 1X/DAY (TWO 100MG CAPSULES AND ONE 50MG CAPSULE BY MOUTH ONCE A DAY)
     Route: 048
     Dates: start: 2017, end: 201703

REACTIONS (31)
  - Loss of consciousness [Unknown]
  - Functional gastrointestinal disorder [Unknown]
  - Anger [Unknown]
  - Prescribed overdose [Unknown]
  - Alopecia [Unknown]
  - Suicide attempt [Unknown]
  - Urinary tract infection [Unknown]
  - Hallucination [Unknown]
  - Motor dysfunction [Unknown]
  - Skin disorder [Not Recovered/Not Resolved]
  - Mania [Unknown]
  - Peripheral swelling [Unknown]
  - Headache [Unknown]
  - Insomnia [Unknown]
  - Gait disturbance [Unknown]
  - Amnesia [Not Recovered/Not Resolved]
  - Oedema [Not Recovered/Not Resolved]
  - Paraesthesia [Unknown]
  - Malaise [Unknown]
  - Panic attack [Unknown]
  - Product use in unapproved indication [Unknown]
  - Pharyngitis [Unknown]
  - Aggression [Unknown]
  - Delirium [Unknown]
  - Off label use [Unknown]
  - Swelling [Unknown]
  - Visual field defect [Not Recovered/Not Resolved]
  - Hyperhidrosis [Unknown]
  - Lymphoedema [Unknown]
  - Rash papular [Unknown]
  - Speech disorder [Unknown]

NARRATIVE: CASE EVENT DATE: 2015
